FAERS Safety Report 4860773-0 (Version None)
Quarter: 2005Q4

REPORT INFORMATION
  Report Type: 
  Country: None (occurrence: None)
  Receive Date: 20051220
  Receipt Date: 20051215
  Transmission Date: 20060501
  Serious: No
  Sender: FDA-Public Use
  Company Number: 2005PK02428

PATIENT
  Age: 23 Year
  Sex: Male

DRUGS (2)
  1. SEROQUEL [Suspect]
     Route: 048
  2. SEROQUEL [Suspect]
     Route: 048

REACTIONS (4)
  - FATIGUE [None]
  - LEUKOPENIA [None]
  - ORTHOSTATIC HYPOTENSION [None]
  - RESTLESS LEGS SYNDROME [None]
